FAERS Safety Report 12606128 (Version 4)
Quarter: 2016Q3

REPORT INFORMATION
  Report Type: Spontaneous
  Country: US (occurrence: US)
  Receive Date: 20160729
  Receipt Date: 20160930
  Transmission Date: 20161109
  Serious: Yes (Hospitalization)
  Sender: FDA-Public Use
  Company Number: US-PFIZER INC-2016364879

PATIENT
  Age: 80 Year
  Sex: Female
  Weight: 83.91 kg

DRUGS (8)
  1. OXYGEN. [Concomitant]
     Active Substance: OXYGEN
     Indication: PULMONARY FIBROSIS
     Dosage: 24 HOURS DAILY
     Dates: start: 201609
  2. REMICADE [Suspect]
     Active Substance: INFLIXIMAB
     Indication: RHEUMATOID ARTHRITIS
     Dosage: 2 LITTLE VIALS EVERY 6 WEEKS
     Route: 042
     Dates: start: 2009
  3. PROCRIT [Concomitant]
     Active Substance: ERYTHROPOIETIN
     Indication: RED BLOOD CELL COUNT ABNORMAL
     Dosage: DOUBLE SHOT EVERY WEEK
     Dates: start: 2015
  4. IRON [Suspect]
     Active Substance: IRON
     Indication: BLOOD IRON DECREASED
  5. OPSUMIT [Concomitant]
     Active Substance: MACITENTAN
     Indication: PULMONARY HYPERTENSION
     Dosage: 10 MG PILL ONCE DAILY IN THE MORNING
     Route: 048
     Dates: start: 2012
  6. IRON [Suspect]
     Active Substance: IRON
     Indication: ANAEMIA
     Dosage: 750 MG, WEEKLY
     Route: 042
     Dates: start: 2010
  7. REVATIO [Suspect]
     Active Substance: SILDENAFIL CITRATE
     Indication: PULMONARY HYPERTENSION
     Dosage: 20 MG, 3X/DAY
     Route: 048
  8. OXYGEN. [Concomitant]
     Active Substance: OXYGEN
     Indication: PULMONARY HYPERTENSION

REACTIONS (4)
  - Dyspnoea [Unknown]
  - Diarrhoea [Recovered/Resolved]
  - Fluid retention [Unknown]
  - Malaise [Not Recovered/Not Resolved]

NARRATIVE: CASE EVENT DATE: 20160726
